FAERS Safety Report 5491448-5 (Version None)
Quarter: 2007Q4

REPORT INFORMATION
  Report Type: 
  Country: None (occurrence: None)
  Receive Date: 20071018
  Receipt Date: 20071005
  Transmission Date: 20080405
  Serious: Yes (Hospitalization, Other)
  Sender: FDA-Public Use
  Company Number: 2007US002459

PATIENT
  Age: 54 Year
  Sex: Male

DRUGS (9)
  1. PROGRAF [Suspect]
     Indication: LIVER TRANSPLANT
     Dosage: 0.25 MG, BID, ORAL
     Route: 048
     Dates: start: 20060913
  2. MYCOPHENOLATE MOFETIL [Suspect]
     Indication: LIVER TRANSPLANT
     Dosage: 500 MG, BID, ORAL
     Route: 048
     Dates: start: 20061108
  3. PREDNISONE TAB [Suspect]
     Indication: LIVER TRANSPLANT
     Dosage: 2.5 MG, UID/QD, ORAL
     Route: 048
     Dates: start: 20060913
  4. FLUCONAZOLE [Suspect]
     Indication: PNEUMONIA CRYPTOCOCCAL
     Dosage: 200 MG
     Dates: start: 20070329
  5. PROTONIX [Concomitant]
  6. ACTIGALL (UROSODEOXYCHOLIC ACID) [Concomitant]
  7. MAGNESIUM OXIDE (MAGNESIUM OXIDE) [Concomitant]
  8. CALCIUM W/COLECALCIFEROL (COLECALCIFEROL, CALCIUM) [Concomitant]
  9. ACTONEL [Concomitant]

REACTIONS (1)
  - SPINAL OSTEOARTHRITIS [None]
